FAERS Safety Report 14479510 (Version 1)
Quarter: 2018Q1

REPORT INFORMATION
  Report Type: Spontaneous
  Country: US (occurrence: US)
  Receive Date: 20180201
  Receipt Date: 20180201
  Transmission Date: 20180509
  Serious: Yes (Death)
  Sender: FDA-Public Use
  Company Number: None

PATIENT
  Age: 55 Year
  Sex: Female

DRUGS (5)
  1. LONSURF [Suspect]
     Active Substance: TIPIRACIL HYDROCHLORIDE\TRIFLURIDINE
     Indication: GASTROINTESTINAL CARCINOMA
     Dosage: DOSE 20-8.19MG?FREQUENCY - 3 TABS 2X DAILY?PO - DAYS 1-5 AND 8-12 EVERY 28 DAYS
     Route: 048
     Dates: start: 20170916
  2. FOSINOPRIL/HCTZ [Concomitant]
  3. CALCITROL [Concomitant]
     Active Substance: CALCITRIOL
  4. VITAMIN D [Concomitant]
     Active Substance: CHOLECALCIFEROL
  5. POTASSIUM [Concomitant]
     Active Substance: POTASSIUM

REACTIONS (1)
  - Death [None]

NARRATIVE: CASE EVENT DATE: 20180112
